FAERS Safety Report 10166201 (Version 2)
Quarter: 2014Q2

REPORT INFORMATION
  Report Type: Spontaneous
  Country: US (occurrence: US)
  Receive Date: 20140512
  Receipt Date: 20140606
  Transmission Date: 20141212
  Serious: No
  Sender: FDA-Public Use
  Company Number: US-BIOGENIDEC-2014BI042261

PATIENT
  Age: 52 Year
  Sex: Female

DRUGS (2)
  1. AVONEX [Suspect]
     Indication: MULTIPLE SCLEROSIS
     Route: 030
     Dates: start: 20140401
  2. AVONEX [Suspect]
     Indication: MULTIPLE SCLEROSIS
     Route: 030
     Dates: start: 201405

REACTIONS (13)
  - Somnolence [Recovered/Resolved]
  - Chills [Recovered/Resolved]
  - Fatigue [Recovered/Resolved]
  - Fall [Recovered/Resolved]
  - Cognitive disorder [Unknown]
  - Tic [Unknown]
  - Crying [Unknown]
  - Madarosis [Unknown]
  - Alopecia [Unknown]
  - Myalgia [Recovered/Resolved]
  - Influenza like illness [Recovered/Resolved]
  - Muscular weakness [Unknown]
  - Paraesthesia [Unknown]
